FAERS Safety Report 10984134 (Version 1)
Quarter: 2015Q2

REPORT INFORMATION
  Report Type: Spontaneous
  Country: EG (occurrence: None)
  Receive Date: 20150401
  Receipt Date: 20150401
  Transmission Date: 20150821
  Serious: Yes (Life-Threatening, Hospitalization)
  Sender: FDA-Public Use
  Company Number: EG-FTV20140320-01

PATIENT
  Age: 52 Year
  Sex: Male

DRUGS (1)
  1. FACTIVE [Suspect]
     Active Substance: GEMIFLOXACIN MESYLATE
     Indication: LOWER RESPIRATORY TRACT INFECTION
     Route: 048

REACTIONS (1)
  - Atrial fibrillation [None]
